FAERS Safety Report 4280521-5 (Version None)
Quarter: 2004Q1

REPORT INFORMATION
  Report Type: 
  Country: None (occurrence: None)
  Receive Date: 20040128
  Receipt Date: 20040128
  Transmission Date: 20041129
  Serious: Yes (Life-Threatening)
  Sender: FDA-Public Use
  Company Number: None

PATIENT
  Age: 46 Year
  Sex: Female

DRUGS (1)
  1. ELOXATIN [Suspect]
     Dosage: 107 MG

REACTIONS (11)
  - ABDOMINAL PAIN [None]
  - CHEST DISCOMFORT [None]
  - CHEST WALL PAIN [None]
  - FLUSHING [None]
  - HYPERSENSITIVITY [None]
  - INFUSION RELATED REACTION [None]
  - PARAESTHESIA [None]
  - RESTLESSNESS [None]
  - TREMOR [None]
  - URTICARIA [None]
  - VOMITING [None]
